FAERS Safety Report 7357619-8 (Version None)
Quarter: 2011Q1

REPORT INFORMATION
  Report Type: 
  Country: None (occurrence: None)
  Receive Date: 20110309
  Receipt Date: 20110224
  Transmission Date: 20110831
  Serious: Yes (Other)
  Sender: FDA-Public Use
  Company Number: 028364

PATIENT
  Age: 14 Year
  Sex: Female

DRUGS (1)
  1. XYZAL [Suspect]
     Indication: PRURITUS
     Dosage: DOSE, ORAL
     Route: 048
     Dates: start: 20110108, end: 20110222

REACTIONS (2)
  - PLATELET COUNT DECREASED [None]
  - HAEMORRHAGE [None]
